FAERS Safety Report 6084405-1 (Version None)
Quarter: 2009Q1

REPORT INFORMATION
  Report Type: 
  Country: None (occurrence: None)
  Receive Date: 20090219
  Receipt Date: 20090213
  Transmission Date: 20090719
  Serious: Yes (Hospitalization, Other)
  Sender: FDA-Public Use
  Company Number: A0769379A

PATIENT
  Age: 70 Year
  Sex: Female

DRUGS (7)
  1. TYKERB [Suspect]
  2. XELODA [Suspect]
  3. ATENOLOL [Concomitant]
  4. VITAMINS [Concomitant]
  5. POTASSIUM CHLORIDE [Concomitant]
  6. MULTI-VITAMIN [Concomitant]
  7. VITAMIN D [Concomitant]

REACTIONS (7)
  - CARDIAC ARREST [None]
  - CATHETER RELATED COMPLICATION [None]
  - DIARRHOEA [None]
  - INFECTION [None]
  - RASH [None]
  - STOMATITIS [None]
  - THERAPEUTIC AGENT TOXICITY [None]
